FAERS Safety Report 15183085 (Version 1)
Quarter: 2018Q3

REPORT INFORMATION
  Report Type: Spontaneous
  Country: GB (occurrence: GB)
  Receive Date: 20180723
  Receipt Date: 20180723
  Transmission Date: 20181010
  Serious: Yes (Congenital Anomaly, Other)
  Sender: FDA-Public Use
  Company Number: GB-AKORN PHARMACEUTICALS-2018AKN01033

PATIENT
  Age: 5 Month
  Sex: Female

DRUGS (1)
  1. ISOTRETINOIN. [Suspect]
     Active Substance: ISOTRETINOIN
     Route: 064

REACTIONS (9)
  - Foetal exposure during pregnancy [Recovered/Resolved]
  - Teratogenicity [Not Recovered/Not Resolved]
  - Cleft lip and palate [Not Recovered/Not Resolved]
  - Congenital teratoma [Not Recovered/Not Resolved]
  - CHARGE syndrome [Not Recovered/Not Resolved]
  - Nasal septum deviation [Not Recovered/Not Resolved]
  - Micrognathia [Not Recovered/Not Resolved]
  - Choanal atresia [Not Recovered/Not Resolved]
  - Syndactyly [Not Recovered/Not Resolved]
